FAERS Safety Report 6748798-1 (Version None)
Quarter: 2010Q2

REPORT INFORMATION
  Report Type: 
  Country: None (occurrence: None)
  Receive Date: 20100601
  Receipt Date: 20100519
  Transmission Date: 20101027
  Serious: Yes (Hospitalization, Other)
  Sender: FDA-Public Use
  Company Number: PHHY2010BE14939

PATIENT
  Age: 50 Year
  Sex: Female

DRUGS (12)
  1. GLEEVEC [Suspect]
     Indication: ACUTE LYMPHOCYTIC LEUKAEMIA
     Dosage: 600 MG
     Dates: start: 20090601
  2. METHOTREXATE [Suspect]
  3. ANTIBIOTICS [Suspect]
  4. LOW MOLECULAR WEIGHT HEPARIN [Suspect]
     Indication: DEEP VEIN THROMBOSIS
  5. VINCRISTINE [Concomitant]
  6. PREDNISONE TAB [Concomitant]
  7. TINZAPARIN [Concomitant]
  8. OMEPRAZOLE [Concomitant]
  9. SEROXAT [Concomitant]
  10. XANAX [Concomitant]
  11. TRAZOLAN [Concomitant]
  12. AEROSOL [Concomitant]

REACTIONS (9)
  - HAEMATURIA [None]
  - HYDRONEPHROSIS [None]
  - LUNG DISORDER [None]
  - PNEUMONIA [None]
  - RENAL FAILURE [None]
  - URETERAL STENT INSERTION [None]
  - URETHRAL DILATATION [None]
  - URINARY RETENTION [None]
  - VIRAL INFECTION [None]
